FAERS Safety Report 7831006-8 (Version None)
Quarter: 2011Q4

REPORT INFORMATION
  Report Type: 
  Country: None (occurrence: None)
  Receive Date: 20111021
  Receipt Date: 20111017
  Transmission Date: 20120403
  Serious: Yes (Other)
  Sender: FDA-Public Use
  Company Number: US-PFIZER INC-2011211383

PATIENT
  Sex: Female
  Weight: 92.971 kg

DRUGS (4)
  1. GABAPENTIN [Concomitant]
     Dosage: UNK
  2. DETROL LA [Suspect]
     Indication: POLLAKIURIA
     Dosage: UNK, 1X/DAY
     Route: 048
     Dates: start: 20110801
  3. XANAX [Concomitant]
     Dosage: UNK
  4. DOXEPIN [Concomitant]
     Dosage: UNK

REACTIONS (2)
  - ULTRASOUND KIDNEY ABNORMAL [None]
  - HEADACHE [None]
